FAERS Safety Report 10075677 (Version 1)
Quarter: 2014Q2

REPORT INFORMATION
  Report Type: Report from Study
  Country: ES (occurrence: ES)
  Receive Date: 20140414
  Receipt Date: 20140414
  Transmission Date: 20141212
  Serious: Yes (Other)
  Sender: FDA-Public Use
  Company Number: ES-009507513-1404ESP006074

PATIENT
  Age: 64 Year
  Sex: Male

DRUGS (1)
  1. PEGINTRON [Suspect]
     Indication: CHRONIC HEPATITIS C
     Dosage: 180 MCG
     Route: 058
     Dates: start: 20111202, end: 20120307

REACTIONS (1)
  - Lichenoid keratosis [Unknown]
